FAERS Safety Report 5960233-X (Version None)
Quarter: 2008Q4

REPORT INFORMATION
  Report Type: 
  Country: None (occurrence: None)
  Receive Date: 20081120
  Receipt Date: 20081114
  Transmission Date: 20090506
  Serious: Yes (Other)
  Sender: FDA-Public Use
  Company Number: US-ELI_LILLY_AND_COMPANY-US200811003987

PATIENT
  Sex: Female
  Weight: 90.703 kg

DRUGS (7)
  1. BYETTA [Suspect]
     Indication: TYPE 2 DIABETES MELLITUS
     Dosage: 5 UG, 2/D
     Route: 058
     Dates: start: 20070901, end: 20071001
  2. BYETTA [Suspect]
     Dosage: 10 UG, 2/D
     Route: 058
     Dates: start: 20081101
  3. ACTOS [Concomitant]
     Dosage: UNK, UNKNOWN
     Route: 048
     Dates: start: 20070901
  4. PRILOSEC [Concomitant]
     Indication: REFLUX OESOPHAGITIS
     Dosage: UNK, UNKNOWN
     Route: 048
  5. FENOFIBRATE [Concomitant]
     Indication: BLOOD TRIGLYCERIDES
     Dosage: UNK, UNKNOWN
     Route: 048
  6. OXYCODONE HCL [Concomitant]
     Indication: PAIN
     Dosage: UNK, AS NEEDED
     Route: 048
  7. PROCAINE HCL [Concomitant]
     Indication: PAIN
     Dosage: UNK, UNKNOWN

REACTIONS (8)
  - BIOPSY BREAST [None]
  - BLOOD GLUCOSE INCREASED [None]
  - BONE DISORDER [None]
  - FALL [None]
  - PAIN [None]
  - PAROSMIA [None]
  - ROTATOR CUFF SYNDROME [None]
  - WEIGHT INCREASED [None]
